FAERS Safety Report 18103201 (Version 1)
Quarter: 2020Q3

REPORT INFORMATION
  Report Type: Spontaneous
  Country: US (occurrence: US)
  Receive Date: 20200802
  Receipt Date: 20200802
  Transmission Date: 20201103
  Serious: No
  Sender: FDA-Public Use
  Company Number: None

PATIENT
  Age: 61 Year
  Sex: Male
  Weight: 109.3 kg

DRUGS (12)
  1. ONDANSETRON 4MG INJ [Concomitant]
     Dates: start: 20200712, end: 20200714
  2. REMDESIVIR. [Suspect]
     Active Substance: REMDESIVIR
     Route: 041
     Dates: start: 20200712, end: 20200715
  3. HUMALOG [Concomitant]
     Active Substance: INSULIN LISPRO
     Dates: start: 20200712, end: 20200716
  4. LOVENOX 40MG SYR [Concomitant]
     Dates: start: 20200712, end: 20200716
  5. GABAPENTIN 100MG CAP [Concomitant]
     Active Substance: GABAPENTIN
     Dates: start: 20200714, end: 20200716
  6. LANTUS [Concomitant]
     Active Substance: INSULIN GLARGINE
     Dates: start: 20200713, end: 20200716
  7. SENNA 8.6MG TAB [Concomitant]
     Dates: start: 20200714, end: 20200716
  8. TRAZODONE [Concomitant]
     Active Substance: TRAZODONE HYDROCHLORIDE
     Dates: start: 20200714, end: 20200716
  9. BENZONATATE CAP 100MG [Concomitant]
     Dates: start: 20200713, end: 20200716
  10. MIRALAX [Concomitant]
     Active Substance: POLYETHYLENE GLYCOL 3350
     Dates: start: 20200714, end: 20200716
  11. ASPIRIN 81MG CHEW TAB [Concomitant]
     Dates: start: 20200712, end: 20200716
  12. VITAMIN C 500MG TAB [Concomitant]
     Dates: start: 20200713, end: 20200716

REACTIONS (1)
  - Infusion site swelling [None]

NARRATIVE: CASE EVENT DATE: 20200715
